FAERS Safety Report 6196219-2 (Version None)
Quarter: 2009Q2

REPORT INFORMATION
  Report Type: 
  Country: None (occurrence: None)
  Receive Date: 20090515
  Receipt Date: 20080501
  Transmission Date: 20091009
  Serious: Yes (Other)
  Sender: FDA-Public Use
  Company Number: 08-195

PATIENT
  Sex: Male
  Weight: 80 kg

DRUGS (5)
  1. FAZACLO ODT [Suspect]
     Indication: SCHIZOPHRENIA
     Dosage: 100 MG BID PO
     Route: 048
     Dates: start: 20080401, end: 20080408
  2. CARBAMAZEPINE [Concomitant]
  3. FLUPHENAZINE [Concomitant]
  4. MAPROTILINE [Concomitant]
  5. LORAZEPAM [Concomitant]

REACTIONS (1)
  - HAEMATEMESIS [None]
